FAERS Safety Report 9322891 (Version 3)
Quarter: 2013Q4

REPORT INFORMATION
  Report Type: Spontaneous
  Country: US (occurrence: US)
  Receive Date: 20130601
  Receipt Date: 20131015
  Transmission Date: 20140711
  Serious: Yes (Hospitalization, Disabling, Other)
  Sender: FDA-Public Use
  Company Number: US-ASTRAZENECA-2013SE38629

PATIENT
  Sex: Female
  Weight: 108.9 kg

DRUGS (34)
  1. NEXIUM [Suspect]
     Indication: GASTROOESOPHAGEAL REFLUX DISEASE
     Route: 048
     Dates: start: 2003, end: 201307
  2. NEXIUM [Suspect]
     Indication: GASTROOESOPHAGEAL REFLUX DISEASE
     Route: 048
     Dates: start: 20100324
  3. PANTOLOC [Concomitant]
  4. TUMS [Concomitant]
     Indication: DYSPEPSIA
  5. PROTONIX [Concomitant]
     Indication: DYSPEPSIA
  6. PROTONIX [Concomitant]
     Indication: GASTROOESOPHAGEAL REFLUX DISEASE
  7. PREVACID [Concomitant]
     Indication: DYSPEPSIA
     Route: 048
     Dates: start: 20100209
  8. PREVACID [Concomitant]
     Indication: GASTROOESOPHAGEAL REFLUX DISEASE
     Route: 048
     Dates: start: 20100209
  9. PREVACID [Concomitant]
     Indication: DYSPEPSIA
     Dates: start: 2005, end: 2013
  10. PREVACID [Concomitant]
     Indication: GASTROOESOPHAGEAL REFLUX DISEASE
     Dates: start: 2005, end: 2013
  11. ZANTAC [Concomitant]
     Indication: DYSPEPSIA
     Dosage: AS DIRECTED
     Dates: start: 2001
  12. LASIX [Concomitant]
     Dosage: AS DIRECTED
  13. LASIX [Concomitant]
  14. PROVENTIL [Concomitant]
  15. FISH OIL [Concomitant]
  16. VITAMIN C [Concomitant]
  17. CALCIUM [Concomitant]
  18. CETRIZINE [Concomitant]
     Indication: RHINITIS ALLERGIC
     Route: 048
     Dates: start: 20120316
  19. GLUCOSAMINE [Concomitant]
     Dosage: 3 A DAY
  20. DIOVAN [Concomitant]
  21. DIOVAN [Concomitant]
     Route: 048
     Dates: start: 20100106
  22. MULTIVITAMIN [Concomitant]
     Dosage: 1 DAILY
  23. ADVAIR [Concomitant]
     Dosage: 250/50, USE 1 INHALATIONS TWICE DAILY AS NEEDED
     Route: 055
     Dates: start: 20100106
  24. FLUTICASONE [Concomitant]
     Indication: RHINITIS ALLERGIC
     Dosage: USE 2 SPRAYS IN EACH NNOSTRIL 1 TO 2 TIMES A DAY AS NEEDED
     Route: 045
     Dates: start: 20100106
  25. CIPROFLOXACIN [Concomitant]
     Route: 048
     Dates: start: 20100106
  26. PAROXETINE [Concomitant]
     Route: 048
     Dates: start: 20100302
  27. DOXYCYCLINE [Concomitant]
     Route: 048
     Dates: start: 20100520
  28. AMOXICILLIN [Concomitant]
     Route: 048
     Dates: start: 20100702
  29. ALKA SELTZER [Concomitant]
     Dosage: AS NEEDED
     Dates: start: 1999
  30. MILK OF MAGNESIA [Concomitant]
     Dosage: AS NEEDED
     Dates: start: 1999
  31. GAVISCON [Concomitant]
     Dosage: AS NEEDED
     Dates: start: 1999
  32. PEPTO BISMOL [Concomitant]
     Dosage: AS NEEDED
     Dates: start: 1999
  33. ROLAIDS [Concomitant]
     Dosage: AS NEEDED
     Dates: start: 1999
  34. MYLANTA [Concomitant]
     Dosage: AS NEEDED
     Dates: start: 1999

REACTIONS (19)
  - Asthma [Unknown]
  - Cystitis [Unknown]
  - Localised infection [Unknown]
  - Lymphoedema [Unknown]
  - Depression [Unknown]
  - Bone density decreased [Unknown]
  - Osteoporosis [Unknown]
  - Arthritis [Unknown]
  - Bone disorder [Unknown]
  - Bone loss [Unknown]
  - Calcium deficiency [Unknown]
  - Chronic obstructive pulmonary disease [Unknown]
  - Fall [Unknown]
  - Muscle strain [Unknown]
  - Lower limb fracture [Unknown]
  - Panic attack [Unknown]
  - Tremor [Unknown]
  - Joint injury [Unknown]
  - Osteopenia [Unknown]
